FAERS Safety Report 18530019 (Version 1)
Quarter: 2020Q4

REPORT INFORMATION
  Report Type: Spontaneous
  Country: US (occurrence: US)
  Receive Date: 20201120
  Receipt Date: 20201120
  Transmission Date: 20210114
  Serious: No
  Sender: FDA-Public Use
  Company Number: US-NOVOPROD-700276

PATIENT
  Age: 33 Year
  Sex: Male

DRUGS (1)
  1. NOVOLOG [Suspect]
     Active Substance: INSULIN ASPART
     Indication: TYPE 2 DIABETES MELLITUS
     Dosage: SLIDING SCALE - 8 UNITS BEFORE BREAKFAST AND LUNCH/12 UNITS BEFORE SUPPER
     Route: 058
     Dates: start: 2012

REACTIONS (4)
  - Device failure [Unknown]
  - Drug dose omission by device [Unknown]
  - Blood glucose increased [Recovering/Resolving]
  - Thirst [Unknown]

NARRATIVE: CASE EVENT DATE: 201911
